FAERS Safety Report 7069228-9 (Version None)
Quarter: 2010Q4

REPORT INFORMATION
  Report Type: 
  Country: None (occurrence: None)
  Receive Date: 20101020
  Receipt Date: 20101006
  Transmission Date: 20110411
  Serious: Yes (Hospitalization)
  Sender: FDA-Public Use
  Company Number: FK0201000440

PATIENT
  Age: 63 Year
  Sex: Female

DRUGS (4)
  1. CAPECITABINE [Suspect]
     Indication: COLON CANCER METASTATIC
     Dosage: 1700 MG/M2 (850 MG/M2,DAYS 1-14 EVERY 3 WEEKS) ORAL ; 1400 MG (700 MG,2 IN 1 D) ORAL
     Route: 048
  2. OXALIPLATIN [Suspect]
     Indication: COLON CANCER METASTATIC
     Dosage: SEE IMAGE
     Route: 042
  3. CETUXIMAB (CETUXIMAB) (CETUXIMAB) [Suspect]
     Indication: COLON CANCER METASTATIC
     Dosage: SEE IMAGE
     Route: 042
  4. IRINOTECAN (IRINOTECAN) (IRINOTECAN) [Concomitant]

REACTIONS (14)
  - DEVICE RELATED SEPSIS [None]
  - FANCONI SYNDROME ACQUIRED [None]
  - GLYCOSURIA [None]
  - HAEMOGLOBIN DECREASED [None]
  - HYPERURICOSURIA [None]
  - ILEUS PARALYTIC [None]
  - METABOLIC ACIDOSIS [None]
  - MUSCULAR WEAKNESS [None]
  - PARAESTHESIA [None]
  - PH URINE INCREASED [None]
  - PROTEINURIA [None]
  - RENAL TUBULAR ACIDOSIS [None]
  - URINE PHOSPHATE DECREASED [None]
  - WHITE BLOOD CELL COUNT DECREASED [None]
